FAERS Safety Report 19575249 (Version 1)
Quarter: 2021Q3

REPORT INFORMATION
  Report Type: Spontaneous
  Country: US (occurrence: US)
  Receive Date: 20210716
  Receipt Date: 20210716
  Transmission Date: 20211014
  Serious: No
  Sender: FDA-Public Use
  Company Number: None

PATIENT
  Age: 39 Year
  Sex: Female

DRUGS (1)
  1. NERLYNX [Suspect]
     Active Substance: NERATINIB
     Indication: BREAST CANCER FEMALE
     Route: 048

REACTIONS (9)
  - Diarrhoea [None]
  - Fatigue [None]
  - Skin fissures [None]
  - Nasal dryness [None]
  - Abdominal discomfort [None]
  - Therapy interrupted [None]
  - Headache [None]
  - Arthralgia [None]
  - Dizziness [None]
